FAERS Safety Report 7865198-1 (Version None)
Quarter: 2011Q4

REPORT INFORMATION
  Report Type: 
  Country: None (occurrence: None)
  Receive Date: 20111028
  Receipt Date: 20101029
  Transmission Date: 20120403
  Serious: No
  Sender: FDA-Public Use
  Company Number: US-GLAXOSMITHKLINE-A0889717A

PATIENT
  Age: 41 Year
  Sex: Female

DRUGS (2)
  1. ADVAIR DISKUS 100/50 [Suspect]
     Indication: ASTHMA
     Route: 055
     Dates: start: 20050101
  2. ALBUTEROL [Concomitant]

REACTIONS (3)
  - PRODUCT QUALITY ISSUE [None]
  - ACCIDENTAL OVERDOSE [None]
  - INHALATION THERAPY [None]
